FAERS Safety Report 5576278-8 (Version None)
Quarter: 2007Q4

REPORT INFORMATION
  Report Type: 
  Country: None (occurrence: None)
  Receive Date: 20071228
  Receipt Date: 20071217
  Transmission Date: 20080405
  Serious: Yes (Death, Other)
  Sender: FDA-Public Use
  Company Number: IT-ROCHE-537920

PATIENT

DRUGS (4)
  1. CAPECITABINE [Suspect]
     Dosage: FROM DAYS 1-7, REPEATED EVERY 2 WEEKS. CAPECITABINE DOSE WAS DECREASED TO 2000 MG/SQM/DAY IN SUBSEQ+
     Route: 048
  2. CAPECITABINE [Suspect]
     Dosage: FROM DAYS 1-7, REPEATED EVERY 2 WEEKS
     Route: 048
  3. IRINOTECAN HCL [Suspect]
     Dosage: 165 MG/SQM OF IRINOTECAN OVER 1 HR ON DAY 1
     Route: 065
  4. OXALIPLATIN [Suspect]
     Dosage: 85 MG/SQM OF OXALIPLATIN OVER 2 HR ON DAY 1
     Route: 065

REACTIONS (3)
  - DEATH [None]
  - DIARRHOEA [None]
  - SEPSIS [None]
